FAERS Safety Report 5252978-4 (Version None)
Quarter: 2007Q1

REPORT INFORMATION
  Report Type: 
  Country: None (occurrence: None)
  Receive Date: 20070227
  Receipt Date: 20070212
  Transmission Date: 20070707
  Serious: Yes (Hospitalization)
  Sender: FDA-Public Use
  Company Number: GXKR2007DE01608

PATIENT
  Age: 44 Year
  Sex: Female

DRUGS (2)
  1. METOCLOPRAMIDE [Suspect]
     Indication: VOMITING
     Dosage: 10 MG, INTRAVENOUS
     Route: 042
  2. BUTYLSCOPOLAMIN (HYOSCINE BUTYLBROMIDE) [Concomitant]

REACTIONS (1)
  - ANAPHYLACTIC REACTION [None]
